FAERS Safety Report 9184839 (Version 1)
Quarter: 2013Q1

REPORT INFORMATION
  Report Type: Spontaneous
  Country: US (occurrence: US)
  Receive Date: 20130325
  Receipt Date: 20130325
  Transmission Date: 20140127
  Serious: Yes (Death)
  Sender: FDA-Public Use
  Company Number: US-BRISTOL-MYERS SQUIBB COMPANY-16491185

PATIENT
  Age: 63 Year
  Sex: Male
  Weight: 68.03 kg

DRUGS (7)
  1. ERBITUX [Suspect]
     Indication: HEAD AND NECK CANCER
     Dosage: LOADING DOSE OF 780MG, LAST DOSE ON: 10JAN2012,2 DOSES OF 487MG
     Dates: start: 20111212
  2. ERBITUX [Suspect]
     Indication: LARYNGEAL CANCER
     Dosage: LOADING DOSE OF 780MG, LAST DOSE ON: 10JAN2012,2 DOSES OF 487MG
     Dates: start: 20111212
  3. XANAX [Concomitant]
  4. PHENERGAN [Concomitant]
  5. ENDOCET [Concomitant]
  6. FLONASE [Concomitant]
  7. FENTANYL PATCH [Concomitant]

REACTIONS (1)
  - Malignant neoplasm progression [Fatal]
